FAERS Safety Report 8731024 (Version 2)
Quarter: 2012Q4

REPORT INFORMATION
  Report Type: 
  Country: US (occurrence: None)
  Receive Date: 20120730
  Receipt Date: 20120808
  Transmission Date: 20130627
  Serious: Yes (Death)
  Sender: FDA-Public Use
  Company Number: AEUSA201200372

PATIENT
  Age: 69 Year
  Sex: Male
  Weight: 77 kg

DRUGS (8)
  1. PROFILNINE SD [Suspect]
     Indication: COAGULOPATHY
     Dosage: 1925 IU;1X;IV
     Route: 042
     Dates: start: 20120527, end: 20120527
  2. APAP [Concomitant]
  3. COMBIVENT [Concomitant]
  4. ASPIRIN [Concomitant]
  5. LISINOPRIL [Concomitant]
  6. NORTRIPTYLINE [Concomitant]
  7. OXYCODONE / ACETAMINOPHEN [Concomitant]
  8. VERAPAMIL [Concomitant]

REACTIONS (3)
  - Haemorrhage [None]
  - Hypotension [None]
  - Respiratory failure [None]
